APPROVED DRUG PRODUCT: PINDOLOL
Active Ingredient: PINDOLOL
Strength: 5MG
Dosage Form/Route: TABLET;ORAL
Application: A074013 | Product #001
Applicant: MYLAN PHARMACEUTICALS INC
Approved: Sep 24, 1992 | RLD: No | RS: No | Type: DISCN